FAERS Safety Report 19371121 (Version 1)
Quarter: 2021Q2

REPORT INFORMATION
  Report Type: Spontaneous
  Country: CN (occurrence: CN)
  Receive Date: 20210604
  Receipt Date: 20210604
  Transmission Date: 20210717
  Serious: Yes (Other)
  Sender: FDA-Public Use
  Company Number: CN-SPECGX-T202101430

PATIENT
  Age: 41 Year
  Sex: Male
  Weight: 90 kg

DRUGS (6)
  1. CEFUROXIME SODIUM. [Suspect]
     Active Substance: CEFUROXIME SODIUM
     Indication: INFECTION
     Dosage: 1.5 GRAM, BID
     Route: 042
     Dates: start: 20210503, end: 20210503
  2. OXYCODONE/ACETAMINOPHEN [Suspect]
     Active Substance: ACETAMINOPHEN\OXYCODONE HYDROCHLORIDE
     Indication: ANALGESIC THERAPY
     Dosage: 5 MILLIGRAM, QD
     Route: 048
     Dates: start: 20210502, end: 20210502
  3. SODIUM CHLORIDE. [Concomitant]
     Active Substance: SODIUM CHLORIDE
     Indication: INFECTION
     Dosage: 100 MILLILITER, BID
     Route: 042
     Dates: start: 20210503, end: 20210503
  4. AZTREONAM. [Suspect]
     Active Substance: AZTREONAM
     Indication: INFECTION
     Dosage: 1 GRAM, BID
     Route: 042
     Dates: start: 20210504, end: 20210504
  5. SODIUM CHLORIDE. [Concomitant]
     Active Substance: SODIUM CHLORIDE
     Indication: BRUCELLOSIS
     Dosage: 100 MILLILITER, QD
     Route: 042
     Dates: start: 20210504, end: 20210504
  6. SODIUM CHLORIDE. [Concomitant]
     Active Substance: SODIUM CHLORIDE
     Dosage: 100 MILLILITER, BID
     Route: 042
     Dates: start: 20210505, end: 20210505

REACTIONS (3)
  - Rash [Recovering/Resolving]
  - Pyrexia [Recovering/Resolving]
  - Brucellosis [Recovering/Resolving]

NARRATIVE: CASE EVENT DATE: 20210503
